FAERS Safety Report 7241733-1 (Version None)
Quarter: 2011Q1

REPORT INFORMATION
  Report Type: 
  Country: None (occurrence: None)
  Receive Date: 20110124
  Receipt Date: 20110113
  Transmission Date: 20110831
  Serious: Yes (Hospitalization)
  Sender: FDA-Public Use
  Company Number: JP-NAPPMUNDI-MAG-2010-0001375

PATIENT
  Age: 70 Year
  Sex: Male

DRUGS (2)
  1. OXYCODONE HCL [Suspect]
     Dosage: 40 MG, DAILY
     Route: 048
     Dates: start: 20100101, end: 20100207
  2. OXYCODONE HCL [Suspect]
     Indication: CANCER PAIN
     Dosage: 40 MG, DAILY
     Route: 048
     Dates: start: 20100101, end: 20100207

REACTIONS (1)
  - DELIRIUM [None]
